FAERS Safety Report 13372648 (Version 1)
Quarter: 2017Q1

REPORT INFORMATION
  Report Type: Spontaneous
  Country: GR (occurrence: GR)
  Receive Date: 20170327
  Receipt Date: 20170327
  Transmission Date: 20170429
  Serious: Yes (Death, Hospitalization)
  Sender: FDA-Public Use
  Company Number: GR-FRESENIUS KABI-FK201702424

PATIENT
  Age: 37 Year
  Sex: Male

DRUGS (3)
  1. GENTAMYCIN [Concomitant]
     Active Substance: GENTAMICIN
     Indication: ENDOCARDITIS
     Route: 042
  2. VANCOMYCIN (MANUFACTURER UNKNOWN) [Suspect]
     Active Substance: VANCOMYCIN
     Indication: ENDOCARDITIS
     Route: 042
  3. MEROPENEM (MANUFACTURER UNKNOWN) [Suspect]
     Active Substance: MEROPENEM
     Indication: ENDOCARDITIS
     Route: 042

REACTIONS (10)
  - Acute pulmonary oedema [Not Recovered/Not Resolved]
  - Device leakage [Not Recovered/Not Resolved]
  - Cardiac valve vegetation [Not Recovered/Not Resolved]
  - Pain in extremity [Unknown]
  - Dry gangrene [Unknown]
  - Inflammatory marker increased [Unknown]
  - Peripheral embolism [Unknown]
  - General physical health deterioration [Not Recovered/Not Resolved]
  - Implant site dehiscence [Not Recovered/Not Resolved]
  - Death [Fatal]
